FAERS Safety Report 25455764 (Version 1)
Quarter: 2025Q2

REPORT INFORMATION
  Report Type: Spontaneous
  Country: FR (occurrence: FR)
  Receive Date: 20250619
  Receipt Date: 20250619
  Transmission Date: 20250716
  Serious: Yes (Life-Threatening, Other)
  Sender: AUROBINDO
  Company Number: FR-AFSSAPS-CN2025000610

PATIENT
  Age: 63 Year
  Sex: Male
  Weight: 65 kg

DRUGS (6)
  1. DOXYCYCLINE HYCLATE [Suspect]
     Active Substance: DOXYCYCLINE HYCLATE
     Indication: Q fever
     Dosage: 200 MILLIGRAM, ONCE A DAY [100 MG MATIN ET SOIR]
     Route: 048
     Dates: start: 20250108, end: 20250121
  2. PLAQUENIL [Suspect]
     Active Substance: HYDROXYCHLOROQUINE SULFATE
     Indication: Q fever
     Dosage: 600 MILLIGRAM, ONCE A DAY [200 MG MATIN, MIDI ET SOIR]
     Route: 048
     Dates: start: 20250115, end: 20250121
  3. TADALAFIL [Concomitant]
     Active Substance: TADALAFIL
     Indication: Erectile dysfunction
     Dosage: 10 MILLIGRAM, EVERY WEEK
     Route: 048
  4. CALCIUM CARBONATE [Concomitant]
     Active Substance: CALCIUM CARBONATE
     Indication: Osteoporosis
     Dosage: 500 MILLIGRAM, ONCE A DAY
     Route: 048
  5. CHOLECALCIFEROL [Concomitant]
     Active Substance: CHOLECALCIFEROL
     Indication: Osteoporosis
     Dosage: 400 INTERNATIONAL UNIT, ONCE A DAY
     Route: 048
  6. ACETAMINOPHEN [Concomitant]
     Active Substance: ACETAMINOPHEN
     Indication: Product used for unknown indication
     Route: 048

REACTIONS (1)
  - AGEP-DRESS overlap [Recovered/Resolved]

NARRATIVE: CASE EVENT DATE: 20250121
